FAERS Safety Report 5585515-5 (Version None)
Quarter: 2008Q1

REPORT INFORMATION
  Report Type: 
  Country: None (occurrence: None)
  Receive Date: 20080109
  Receipt Date: 20080103
  Transmission Date: 20080703
  Serious: Yes (Hospitalization, Other)
  Sender: FDA-Public Use
  Company Number: A0700609A

PATIENT
  Age: 45 Year
  Sex: Female

DRUGS (5)
  1. AVANDIA [Suspect]
     Route: 065
     Dates: end: 20071201
  2. GLYBURIDE [Concomitant]
     Route: 048
  3. METFORMIN HCL [Concomitant]
     Route: 048
  4. HYPERTENSION MED [Concomitant]
  5. CHOLESTEROL REDUCING AGENT NAME NOT KNOWN [Concomitant]

REACTIONS (4)
  - DYSPEPSIA [None]
  - DYSPNOEA [None]
  - MYOCARDIAL INFARCTION [None]
  - PAIN IN EXTREMITY [None]
